FAERS Safety Report 23679735 (Version 1)
Quarter: 2024Q1

REPORT INFORMATION
  Report Type: Report from Study
  Country: US (occurrence: None)
  Receive Date: 20240327
  Receipt Date: 20240327
  Transmission Date: 20240409
  Serious: Yes (Hospitalization)
  Sender: FDA-Public Use
  Company Number: 2024A067883

PATIENT
  Sex: Female
  Weight: 72.1 kg

DRUGS (1)
  1. TRUQAP [Suspect]
     Active Substance: CAPIVASERTIB
     Indication: Breast cancer female
     Route: 048
     Dates: start: 20240229

REACTIONS (3)
  - Device occlusion [Unknown]
  - Rash [Unknown]
  - Diarrhoea [Unknown]
